FAERS Safety Report 5802241-5 (Version None)
Quarter: 2008Q3

REPORT INFORMATION
  Report Type: 
  Country: None (occurrence: None)
  Receive Date: 20080707
  Receipt Date: 20080625
  Transmission Date: 20090109
  Serious: Yes (Hospitalization)
  Sender: FDA-Public Use
  Company Number: PT-PFIZER INC-2008053947

PATIENT
  Age: 19 Year
  Sex: Male

DRUGS (2)
  1. ARTHROTEC [Suspect]
     Dosage: TEXT:75 MG / 0,2 MG
     Route: 048
  2. DRUG, UNSPECIFIED [Suspect]
     Route: 048

REACTIONS (2)
  - OVERDOSE [None]
  - SUICIDE ATTEMPT [None]
